FAERS Safety Report 4742591-7 (Version None)
Quarter: 2005Q3

REPORT INFORMATION
  Report Type: 
  Country: None (occurrence: None)
  Receive Date: 20050811
  Receipt Date: 20040405
  Transmission Date: 20060218
  Serious: Yes (Other)
  Sender: FDA-Public Use
  Company Number: FR-GILEAD-2004-0006881

PATIENT
  Sex: Male
  Weight: 66 kg

DRUGS (5)
  1. TENOFOVIR DISOPROXIL FUMARATE [Suspect]
     Indication: HIV INFECTION
     Route: 048
     Dates: start: 20031205, end: 20040423
  2. EFAVIRENZ [Suspect]
     Indication: HIV INFECTION
     Route: 048
     Dates: start: 20031205, end: 20040329
  3. EFAVIRENZ [Suspect]
     Route: 048
     Dates: start: 20040330, end: 20040415
  4. EFAVIRENZ [Suspect]
     Route: 048
     Dates: start: 20040415, end: 20040601
  5. EFAVIRENZ [Suspect]
     Route: 048
     Dates: start: 20040601, end: 20040629

REACTIONS (4)
  - CYTOLYTIC HEPATITIS [None]
  - HEPATITIS [None]
  - LYMPHADENOPATHY [None]
  - SYPHILIS TEST POSITIVE [None]
